FAERS Safety Report 25034475 (Version 1)
Quarter: 2025Q1

REPORT INFORMATION
  Report Type: Report from Study
  Country: IN (occurrence: IN)
  Receive Date: 20250304
  Receipt Date: 20250304
  Transmission Date: 20250409
  Serious: Yes (Hospitalization)
  Sender: BOEHRINGER INGELHEIM
  Company Number: IN-BoehringerIngelheim-2025-BI-011873

PATIENT

DRUGS (2)
  1. TELMISARTAN [Suspect]
     Active Substance: TELMISARTAN
     Indication: Product used for unknown indication
  2. CILNIDIPINE [Suspect]
     Active Substance: CILNIDIPINE
     Indication: Product used for unknown indication

REACTIONS (2)
  - Hyperuricaemia [Unknown]
  - Drug interaction [Unknown]
